FAERS Safety Report 18818700 (Version 1)
Quarter: 2021Q1

REPORT INFORMATION
  Report Type: Spontaneous
  Country: CN (occurrence: CN)
  Receive Date: 20210201
  Receipt Date: 20210201
  Transmission Date: 20210419
  Serious: Yes (Other)
  Sender: FDA-Public Use
  Company Number: CN-BAYER-2021-048264

PATIENT
  Age: 63 Year
  Sex: Female
  Weight: 60 kg

DRUGS (16)
  1. BETAMETHASONE SODIUM PHOSPHATE [Suspect]
     Active Substance: BETAMETHASONE SODIUM PHOSPHATE
     Indication: CHRONIC OBSTRUCTIVE PULMONARY DISEASE
     Dosage: 4 MG, QD
     Route: 041
     Dates: start: 20201106, end: 20201110
  2. FUROSEMIDE. [Concomitant]
     Active Substance: FUROSEMIDE
  3. SODIUM CHLORIDE. [Concomitant]
     Active Substance: SODIUM CHLORIDE
  4. LORATADINE. [Concomitant]
     Active Substance: LORATADINE
  5. AVELOX [Suspect]
     Active Substance: MOXIFLOXACIN HYDROCHLORIDE
     Indication: PNEUMONIA
     Dosage: 0.4 G, QD
     Route: 048
     Dates: start: 20201107, end: 20201110
  6. PULMICORT TURBUHALER [Concomitant]
     Active Substance: BUDESONIDE
  7. HAI ZHENG MEI TE [Concomitant]
  8. GLUCOSE [Concomitant]
     Active Substance: DEXTROSE
  9. ATROVENT [Concomitant]
     Active Substance: IPRATROPIUM BROMIDE
  10. TIOTROPIUM [Concomitant]
     Active Substance: TIOTROPIUM
  11. BUDESONIDE AND FORMOTEROL [Concomitant]
     Active Substance: BUDESONIDE\FORMOTEROL
  12. QIE NUO [Concomitant]
  13. FU ZHI [Concomitant]
  14. SPIRONOLACTONE. [Concomitant]
     Active Substance: SPIRONOLACTONE
  15. LOW?MOLECULAR?WEIGHT HEPARIN CALCIUM [Concomitant]
     Active Substance: HEPARIN CALCIUM
  16. CLARITYNE 10 MG [Suspect]
     Active Substance: LORATADINE
     Indication: URTICARIA
     Dosage: 10 MG, QD
     Route: 048
     Dates: start: 20201106, end: 20201117

REACTIONS (2)
  - Agitation [Recovering/Resolving]
  - Delirium [Recovering/Resolving]

NARRATIVE: CASE EVENT DATE: 20201110
